FAERS Safety Report 7502205-X (Version None)
Quarter: 2011Q2

REPORT INFORMATION
  Report Type: 
  Country: None (occurrence: None)
  Receive Date: 20110523
  Receipt Date: 20110523
  Transmission Date: 20111010
  Serious: No
  Sender: FDA-Public Use
  Company Number: None

PATIENT
  Sex: Male
  Weight: 73.6 kg

DRUGS (1)
  1. GABAPENTIN [Suspect]
     Indication: MUSCLE INJURY
     Dosage: 2 CAPSULES DAY FOR 30 DAYS ORAL (047)
     Route: 048
     Dates: start: 20110426, end: 20110517

REACTIONS (4)
  - PRODUCT COUNTERFEIT [None]
  - PRODUCT SUBSTITUTION ISSUE [None]
  - TREATMENT FAILURE [None]
  - DRUG INEFFECTIVE [None]
